FAERS Safety Report 16664719 (Version 1)
Quarter: 2019Q3

REPORT INFORMATION
  Report Type: Spontaneous
  Country: FR (occurrence: FR)
  Receive Date: 20190803
  Receipt Date: 20190803
  Transmission Date: 20191004
  Serious: Yes (Hospitalization, Other)
  Sender: FDA-Public Use
  Company Number: FR-AUROBINDO-AUR-APL-2019-044843

PATIENT

DRUGS (6)
  1. XARELTO [Suspect]
     Active Substance: RIVAROXABAN
     Indication: ATRIAL FIBRILLATION
     Dosage: 1 DOSAGE FORM, ONCE A DAY
     Route: 048
     Dates: end: 20190702
  2. PREDNISONE. [Suspect]
     Active Substance: PREDNISONE
     Indication: VASCULITIS
     Dosage: 10 MILLIGRAM, ONCE A DAY
     Route: 048
     Dates: end: 20190702
  3. BISOPROLOL [Suspect]
     Active Substance: BISOPROLOL
     Indication: HYPERTENSION
     Dosage: 25 MILLIGRAM, ONCE A DAY
     Route: 048
     Dates: end: 20190702
  4. PRETERAX [Suspect]
     Active Substance: INDAPAMIDE\PERINDOPRIL
     Indication: HYPERTENSION
     Dosage: 0.5 DOSAGE FORM, ONCE A DAY
     Route: 048
     Dates: end: 20190702
  5. IMETH [Suspect]
     Active Substance: METHOTREXATE SODIUM
     Indication: VASCULITIS
     Dosage: 1 DOSAGE FORM, EVERY WEEK
     Route: 058
     Dates: end: 20190702
  6. FOLIC ACID. [Suspect]
     Active Substance: FOLIC ACID
     Indication: DRUG TOXICITY PROPHYLAXIS
     Dosage: 20 MILLIGRAM, EVERY WEEK
     Route: 065
     Dates: end: 20190702

REACTIONS (2)
  - Agranulocytosis [Not Recovered/Not Resolved]
  - Pancytopenia [Not Recovered/Not Resolved]

NARRATIVE: CASE EVENT DATE: 20190701
